FAERS Safety Report 12181336 (Version 1)
Quarter: 2016Q1

REPORT INFORMATION
  Report Type: Spontaneous
  Country: US (occurrence: US)
  Receive Date: 20160315
  Receipt Date: 20160315
  Transmission Date: 20160526
  Serious: No
  Sender: FDA-Public Use
  Company Number: US-ALLERGAN-1635771US

PATIENT
  Sex: Female

DRUGS (3)
  1. ELUXADOLINE UNK [Suspect]
     Active Substance: ELUXADOLINE
     Indication: PRODUCT USED FOR UNKNOWN INDICATION
     Dosage: 100 MG, BID
  2. ELUXADOLINE UNK [Suspect]
     Active Substance: ELUXADOLINE
     Dosage: 100 MG, QOD
  3. ELUXADOLINE UNK [Suspect]
     Active Substance: ELUXADOLINE
     Dosage: 100 MG, QD

REACTIONS (4)
  - Sedation [Recovering/Resolving]
  - Pain [Recovering/Resolving]
  - Abdominal pain [Recovering/Resolving]
  - Constipation [Unknown]
